FAERS Safety Report 8472495-8 (Version None)
Quarter: 2012Q2

REPORT INFORMATION
  Report Type: 
  Country: None (occurrence: None)
  Receive Date: 20120627
  Receipt Date: 20120203
  Transmission Date: 20120825
  Serious: No
  Sender: FDA-Public Use
  Company Number: US-AMGEN-USASP2012008141

PATIENT
  Age: 97 Year
  Sex: Female

DRUGS (2)
  1. IRON [Concomitant]
  2. PROCRIT [Suspect]
     Indication: ANAEMIA
     Dosage: UNK
     Dates: end: 20110901

REACTIONS (1)
  - HAEMATOCRIT DECREASED [None]
